FAERS Safety Report 5800035-8 (Version None)
Quarter: 2008Q3

REPORT INFORMATION
  Report Type: 
  Country: None (occurrence: None)
  Receive Date: 20080702
  Receipt Date: 20080702
  Transmission Date: 20090109
  Serious: Yes (Other)
  Sender: FDA-Public Use
  Company Number: None

PATIENT
  Age: 81 Year
  Sex: Female

DRUGS (1)
  1. DIGOXIN [Suspect]
     Dosage: TAKE 1 TABLET DAILY
     Dates: start: 20080201

REACTIONS (2)
  - CARDIAC DISORDER [None]
  - DIARRHOEA [None]
